FAERS Safety Report 7724372-5 (Version None)
Quarter: 2011Q3

REPORT INFORMATION
  Report Type: 
  Country: None (occurrence: None)
  Receive Date: 20110901
  Receipt Date: 20110825
  Transmission Date: 20111222
  Serious: Yes (Death, Hospitalization)
  Sender: FDA-Public Use
  Company Number: JP-JNJFOC-20110701789

PATIENT
  Sex: Female
  Weight: 56 kg

DRUGS (8)
  1. REMICADE [Suspect]
     Indication: RHEUMATOID ARTHRITIS
     Route: 042
     Dates: start: 20110414
  2. ANALGESICS [Concomitant]
     Route: 065
  3. REMICADE [Suspect]
     Route: 042
  4. REMICADE [Suspect]
     Dosage: 3 MG/KG
     Route: 042
     Dates: start: 20110106
  5. FOLIC ACID [Concomitant]
     Indication: PROPHYLAXIS
     Route: 048
     Dates: start: 20101111, end: 20110616
  6. STEROIDS NOS [Concomitant]
     Route: 065
  7. REMICADE [Suspect]
     Route: 042
  8. METHOTREXATE [Concomitant]
     Indication: RHEUMATOID ARTHRITIS
     Route: 048
     Dates: start: 20101111, end: 20110616

REACTIONS (3)
  - SMALL CELL LUNG CANCER METASTATIC [None]
  - PLEURAL EFFUSION [None]
  - EOSINOPHILIA [None]
